FAERS Safety Report 15334061 (Version 1)
Quarter: 2018Q3

REPORT INFORMATION
  Report Type: Spontaneous
  Country: US (occurrence: US)
  Receive Date: 20180829
  Receipt Date: 20180829
  Transmission Date: 20181010
  Serious: Yes (Death)
  Sender: FDA-Public Use
  Company Number: None

PATIENT
  Age: 22 Year
  Sex: Male
  Weight: 68.04 kg

DRUGS (2)
  1. KRATOM [Suspect]
     Active Substance: MITRAGYNINE\HERBALS
     Indication: SLEEP DISORDER THERAPY
     Route: 048
     Dates: start: 20160101, end: 20171123
  2. KRATOM [Suspect]
     Active Substance: MITRAGYNINE\HERBALS
     Indication: ANXIETY
     Route: 048
     Dates: start: 20160101, end: 20171123

REACTIONS (2)
  - Intentional product use issue [None]
  - Alcohol use [None]

NARRATIVE: CASE EVENT DATE: 20171123
